FAERS Safety Report 8730433 (Version 2)
Quarter: 2012Q4

REPORT INFORMATION
  Report Type: 
  Country: ES (occurrence: ES)
  Receive Date: 20120817
  Receipt Date: 20120904
  Transmission Date: 20130627
  Serious: Yes (Hospitalization)
  Sender: FDA-Public Use
  Company Number: ES-B.I. PHARMACEUTICALS,INC./RIDGEFIELD-2012-ES-00319ES

PATIENT
  Age: 37 Year
  Sex: Female

DRUGS (2)
  1. TRAJENTA [Suspect]
     Indication: TYPE 2 DIABETES MELLITUS
     Route: 048
     Dates: start: 20120604, end: 20120606
  2. REPAGLINIDE [Suspect]
     Indication: TYPE 2 DIABETES MELLITUS
     Dates: start: 20120528, end: 20120615

REACTIONS (3)
  - Drug-induced liver injury [Recovered/Resolved]
  - Jaundice [Recovered/Resolved]
  - Pruritus generalised [Recovered/Resolved]
